FAERS Safety Report 10027973 (Version 3)
Quarter: 2016Q2

REPORT INFORMATION
  Report Type: Spontaneous
  Country: JP (occurrence: JP)
  Receive Date: 20140226
  Receipt Date: 20160428
  Transmission Date: 20160815
  Serious: Yes (Death, Other)
  Sender: FDA-Public Use
  Company Number: ADR-2011-10039

PATIENT
  Age: 36 Year
  Sex: Male

DRUGS (9)
  1. PURSENNID [Concomitant]
     Active Substance: SENNOSIDES A AND B
     Route: 048
     Dates: start: 20100913, end: 20101211
  2. GABALON [Suspect]
     Active Substance: BACLOFEN
     Route: 037
     Dates: start: 200706
  3. EURODIN [Concomitant]
     Active Substance: ESTAZOLAM
     Route: 048
     Dates: start: 20100913, end: 20101012
  4. JUVELA N [Concomitant]
     Active Substance: TOCOPHERYL NICOTINATE, D-.ALPHA.
     Route: 048
     Dates: start: 20100913, end: 20101211
  5. NAUZELIN [Concomitant]
     Active Substance: DOMPERIDONE
     Route: 048
     Dates: start: 20100913, end: 20101211
  6. HALCION [Concomitant]
     Active Substance: TRIAZOLAM
     Dosage: 0.5 MG/DAY
     Route: 048
     Dates: start: 20100913, end: 20100926
  7. METHYCOBAL [Concomitant]
     Active Substance: METHYLCOBALAMIN
     Route: 048
     Dates: start: 20100913, end: 20101211
  8. GABAPEN [Concomitant]
     Active Substance: GABAPENTIN
     Route: 048
     Dates: start: 20100913, end: 20101211
  9. CERCINE [Concomitant]
     Active Substance: DIAZEPAM
     Route: 048
     Dates: start: 20100913, end: 20101211

REACTIONS (6)
  - Fall [Fatal]
  - Muscle spasms [Fatal]
  - Death [Fatal]
  - Drug effect decreased [Fatal]
  - Drug withdrawal syndrome [Fatal]
  - Seizure [Fatal]

NARRATIVE: CASE EVENT DATE: 20081211
